FAERS Safety Report 24553408 (Version 1)
Quarter: 2024Q4

REPORT INFORMATION
  Report Type: Spontaneous
  Country: US (occurrence: US)
  Receive Date: 20241028
  Receipt Date: 20241028
  Transmission Date: 20250115
  Serious: No
  Sender: ROCHE
  Company Number: US-ROCHE-3525952

PATIENT
  Age: 70 Year
  Sex: Female

DRUGS (1)
  1. NUTROPIN AQ [Suspect]
     Active Substance: SOMATROPIN
     Indication: Hypopituitarism
     Dosage: NUSPIN 5MG/2ML, EVERY NIGHT
     Route: 058

REACTIONS (4)
  - Burning sensation [Unknown]
  - Abdominal discomfort [Unknown]
  - Tinnitus [Unknown]
  - Ear pain [Unknown]
